FAERS Safety Report 5160596-1 (Version None)
Quarter: 2006Q4

REPORT INFORMATION
  Report Type: 
  Country: None (occurrence: None)
  Receive Date: 20061121
  Receipt Date: 20061108
  Transmission Date: 20070319
  Serious: Yes (Hospitalization, Other)
  Sender: FDA-Public Use
  Company Number: 2006138070

PATIENT
  Age: 58 Year
  Sex: Female
  Weight: 77.1115 kg

DRUGS (7)
  1. EXUBERA [Suspect]
     Indication: DIABETES MELLITUS NON-INSULIN-DEPENDENT
     Dosage: 9 MG (3 MG, 3 IN 1 D)
     Dates: start: 20060928
  2. LIPITOR [Suspect]
     Indication: BLOOD CHOLESTEROL
     Dosage: 40 MG (40 MG, 1 IN 1 D)
     Dates: start: 20060925
  3. TOPROL-XL [Suspect]
     Indication: HYPERTENSION
     Dosage: 200 MG (100 MG, 2 IN 1 D)
     Dates: start: 20060925
  4. PLAVIX [Suspect]
     Indication: STENT PLACEMENT
     Dosage: 75 MG, 1 IN 1 D
     Dates: start: 20060925
  5. ASPIRIN [Suspect]
     Indication: STENT PLACEMENT
     Dosage: 81 MG, 1 IN 1 D
     Dates: start: 20060925
  6. PNEUMOCOCCAL VACCINE (PNEUMOCOCCAL VACCINE) [Suspect]
     Indication: PROPHYLAXIS
     Dosage: PARENTERAL
     Route: 051
     Dates: start: 20061101
  7. LANTUS [Concomitant]

REACTIONS (7)
  - ABDOMINAL PAIN UPPER [None]
  - CARDIAC FAILURE CONGESTIVE [None]
  - CHEST X-RAY ABNORMAL [None]
  - DIABETES MELLITUS INADEQUATE CONTROL [None]
  - DYSPNOEA [None]
  - LYMPHADENOPATHY [None]
  - MALAISE [None]
